FAERS Safety Report 16791626 (Version 2)
Quarter: 2019Q3

REPORT INFORMATION
  Report Type: Report from Study
  Country: JO (occurrence: JO)
  Receive Date: 20190910
  Receipt Date: 20190926
  Transmission Date: 20191005
  Serious: Yes (Hospitalization)
  Sender: FDA-Public Use
  Company Number: JO-PFIZER INC-2019385899

PATIENT
  Age: 62 Year
  Sex: Female
  Weight: 91 kg

DRUGS (8)
  1. CONCOR 5 PLUS [Concomitant]
     Indication: HYPERTENSION
     Dosage: [BISOPROLOL FUMARATE 5MG]/[ HYDROCHLOROTHIAZIDE 12.5MG], 1X A DAY
     Route: 048
     Dates: start: 20181207, end: 20190810
  2. FOLIC ACID. [Concomitant]
     Active Substance: FOLIC ACID
     Indication: RHEUMATOID ARTHRITIS
     Dosage: ONCE WEEKLY
     Route: 048
     Dates: start: 20051112
  3. ARBITEN PLUS [Concomitant]
     Indication: HYPERTENSION
     Dosage: [VALSARTAN 160MG]/ [HYDROCHLOROTHIAZIDE 12.5 MG], 1X A DAY
     Route: 048
     Dates: start: 20180710, end: 20190810
  4. TOFACITINIB CITRATE [Suspect]
     Active Substance: TOFACITINIB CITRATE
     Indication: RHEUMATOID ARTHRITIS
     Dosage: 5 MG, 2X/DAY
     Route: 048
     Dates: start: 20161229
  5. PREDNISOLONE. [Concomitant]
     Active Substance: PREDNISOLONE
     Indication: RHEUMATOID ARTHRITIS
     Dosage: 1X/DAY (QD)
     Route: 048
     Dates: start: 2013
  6. METHOTREXATE. [Concomitant]
     Active Substance: METHOTREXATE
     Indication: RHEUMATOID ARTHRITIS
     Dosage: ONCE WEEKLY
     Route: 048
     Dates: start: 2015
  7. METHOTREXATE. [Concomitant]
     Active Substance: METHOTREXATE
     Dosage: ONCE WEEKLY
     Route: 048
     Dates: start: 20190526
  8. PREDNISOLONE. [Concomitant]
     Active Substance: PREDNISOLONE
     Dosage: 1X/DAY (QD)
     Route: 048
     Dates: start: 20190526

REACTIONS (1)
  - Chest pain [Recovered/Resolved]

NARRATIVE: CASE EVENT DATE: 20190810
